FAERS Safety Report 17277505 (Version 2)
Quarter: 2020Q1

REPORT INFORMATION
  Report Type: Spontaneous
  Country: AR (occurrence: AR)
  Receive Date: 20200116
  Receipt Date: 20200305
  Transmission Date: 20200409
  Serious: Yes (Other)
  Sender: FDA-Public Use
  Company Number: AR-009507513-2001ARG003538

PATIENT
  Age: 27 Year
  Sex: Female

DRUGS (3)
  1. CARBAMAZEPINE. [Concomitant]
     Active Substance: CARBAMAZEPINE
     Indication: EPILEPSY
     Dosage: 200 MILLIGRAM, QD
  2. IMPLANON NXT [Suspect]
     Active Substance: ETONOGESTREL
     Dosage: LEFT ARM
     Dates: start: 2017, end: 20191212
  3. JADELLE [Suspect]
     Active Substance: LEVONORGESTREL
     Dosage: 1 SUBDERMAL IMPLANT
     Route: 059

REACTIONS (4)
  - Scar [Unknown]
  - Pregnancy with implant contraceptive [Unknown]
  - Overdose [Unknown]
  - Unintended pregnancy [Not Recovered/Not Resolved]

NARRATIVE: CASE EVENT DATE: 20190905
